FAERS Safety Report 8189565-4 (Version None)
Quarter: 2012Q1

REPORT INFORMATION
  Report Type: 
  Country: None (occurrence: None)
  Receive Date: 20120307
  Receipt Date: 20120221
  Transmission Date: 20120608
  Serious: Yes (Life-Threatening, Hospitalization, Disabling, Other)
  Sender: FDA-Public Use
  Company Number: US-AMGEN-IMM025249

PATIENT
  Age: 56 Year
  Sex: Male

DRUGS (4)
  1. ENBREL [Suspect]
     Indication: RHEUMATOID ARTHRITIS
     Dosage: 25 MG, Q2WK
     Route: 058
     Dates: start: 20000627, end: 20021105
  2. INDOMETHACIN [Suspect]
     Dosage: 50 MG, UNK
     Route: 048
     Dates: end: 20021105
  3. INDOMETHACIN [Suspect]
     Dosage: 75 MG, QD
     Route: 048
     Dates: end: 20021105
  4. PREDNISONE TAB [Suspect]
     Dosage: 5 MG, QD
     Route: 048
     Dates: start: 19920615

REACTIONS (4)
  - SEPTIC ARTHRITIS STAPHYLOCOCCAL [None]
  - NERVE COMPRESSION [None]
  - JOINT DESTRUCTION [None]
  - STAPHYLOCOCCAL SEPSIS [None]
